FAERS Safety Report 22055684 (Version 1)
Quarter: 2023Q1

REPORT INFORMATION
  Report Type: Spontaneous
  Country: US (occurrence: None)
  Receive Date: 20230302
  Receipt Date: 20230302
  Transmission Date: 20230418
  Serious: Yes (Hospitalization)
  Sender: FDA-Public Use
  Company Number: None

PATIENT
  Age: 75 Year
  Sex: Female
  Weight: 81.6 kg

DRUGS (32)
  1. EVEROLIMUS [Suspect]
     Active Substance: EVEROLIMUS
     Indication: Breast cancer female
     Dosage: OTHER FREQUENCY : Q MORNING;?
     Route: 048
  2. ATORVASTATIN [Concomitant]
     Active Substance: ATORVASTATIN
  3. BENADRYL [Concomitant]
     Active Substance: DIPHENHYDRAMINE HYDROCHLORIDE
  4. BUDESONIDE [Concomitant]
     Active Substance: BUDESONIDE
  5. CALCIUM\VITAMIN D [Concomitant]
     Active Substance: CALCIUM\VITAMIN D
  6. CETIRIZINE [Concomitant]
     Active Substance: CETIRIZINE HYDROCHLORIDE
  7. COZAAR [Concomitant]
     Active Substance: LOSARTAN POTASSIUM
  8. DRONABINOL [Concomitant]
     Active Substance: DRONABINOL
  9. DULOXETINE [Concomitant]
     Active Substance: DULOXETINE
  10. FERROUS SULFATE [Concomitant]
     Active Substance: FERROUS SULFATE
  11. GABAPENTIN [Concomitant]
     Active Substance: GABAPENTIN
  12. GLIPIZIDE [Concomitant]
     Active Substance: GLIPIZIDE
  13. IBUPOFEN [Concomitant]
  14. ALBUTEROL\IPRATROPIUM [Concomitant]
     Active Substance: ALBUTEROL\IPRATROPIUM
  15. LASIX [Concomitant]
     Active Substance: FUROSEMIDE
  16. LETROZOLE [Concomitant]
     Active Substance: LETROZOLE
  17. LIDODERM [Concomitant]
     Active Substance: LIDOCAINE
  18. MECLIZINE [Concomitant]
     Active Substance: MECLIZINE HYDROCHLORIDE
  19. MEGESTROL [Concomitant]
     Active Substance: MEGESTROL
  20. METAXALONE [Concomitant]
  21. METHOCARBAMOL [Concomitant]
     Active Substance: METHOCARBAMOL
  22. MIRALAX [Concomitant]
     Active Substance: POLYETHYLENE GLYCOL 3350
  23. MIRTAZAPINE [Concomitant]
     Active Substance: MIRTAZAPINE
  24. MONTELUKAST [Concomitant]
     Active Substance: MONTELUKAST SODIUM
  25. MS CONTIN [Concomitant]
     Active Substance: MORPHINE SULFATE
  26. MUCINEX [Concomitant]
     Active Substance: GUAIFENESIN
  27. NORCO [Concomitant]
     Active Substance: ACETAMINOPHEN\HYDROCODONE BITARTRATE
  28. NORVASC [Concomitant]
     Active Substance: AMLODIPINE BESYLATE
  29. SENNA [Concomitant]
     Active Substance: SENNA LEAF\SENNOSIDES\SENNOSIDES A AND B
  30. TOPRO XL [Concomitant]
  31. URSODIOL [Concomitant]
     Active Substance: URSODIOL
  32. VOLTAREN [Concomitant]
     Active Substance: DICLOFENAC SODIUM

REACTIONS (1)
  - Thrombosis [None]
